FAERS Safety Report 7329819-4 (Version None)
Quarter: 2011Q1

REPORT INFORMATION
  Report Type: 
  Country: None (occurrence: None)
  Receive Date: 20110303
  Receipt Date: 20110207
  Transmission Date: 20110831
  Serious: No
  Sender: FDA-Public Use
  Company Number: US-B.I. PHARMACEUTICALS,INC./RIDGEFIELD-2011-BP-04503BP

PATIENT
  Age: 66 Year
  Sex: Male

DRUGS (9)
  1. METOPROLOL [Concomitant]
     Indication: HYPERTENSION
     Dosage: 200 MG
     Route: 048
     Dates: start: 20070101
  2. SOTALOL HYDROCHLORIDE [Concomitant]
     Indication: CARDIAC DISORDER
     Dosage: 160 MG
     Route: 048
     Dates: start: 20070101
  3. LEXAPRO [Concomitant]
     Indication: MOOD ALTERED
     Dosage: 160 MG
     Route: 048
     Dates: start: 20100701
  4. TEMAZEPAM [Concomitant]
     Indication: SLEEP DISORDER
     Dosage: 160 MG
     Route: 048
     Dates: start: 20090101
  5. PRADAXA [Suspect]
     Indication: ATRIAL FIBRILLATION
     Dosage: 300 MG
     Route: 048
     Dates: start: 20110129
  6. VYTORIN [Concomitant]
     Indication: BLOOD CHOLESTEROL INCREASED
     Dosage: 160 MG
     Route: 048
     Dates: start: 20070101
  7. HYDROCODONE BITARTRATE [Concomitant]
     Indication: BACK INJURY
     Route: 048
  8. LYRICA [Concomitant]
     Route: 048
  9. OXYCODONE [Concomitant]
     Indication: BACK INJURY
     Route: 048

REACTIONS (4)
  - DYSPHAGIA [None]
  - THROAT TIGHTNESS [None]
  - DYSPEPSIA [None]
  - THROAT IRRITATION [None]
